FAERS Safety Report 16472585 (Version 1)
Quarter: 2019Q2

REPORT INFORMATION
  Report Type: Spontaneous
  Country: DE (occurrence: DE)
  Receive Date: 20190625
  Receipt Date: 20190625
  Transmission Date: 20190711
  Serious: Yes (Hospitalization, Other)
  Sender: FDA-Public Use
  Company Number: DE-SUN PHARMACEUTICAL INDUSTRIES LTD-2019RR-211440

PATIENT
  Age: 57 Year
  Sex: Male
  Weight: 89 kg

DRUGS (1)
  1. CIPRO [Suspect]
     Active Substance: CIPROFLOXACIN HYDROCHLORIDE
     Indication: PRODUCT USED FOR UNKNOWN INDICATION
     Dosage: 9 DOSAGE FORM, 2 X 500 MG TAEGLICH ; IN TOTAL
     Route: 048
     Dates: start: 20190418, end: 20190422

REACTIONS (14)
  - Paraesthesia [Not Recovered/Not Resolved]
  - Vitreous haemorrhage [Unknown]
  - Headache [Unknown]
  - Neuralgia [Not Recovered/Not Resolved]
  - Myalgia [Not Recovered/Not Resolved]
  - Joint noise [Not Recovered/Not Resolved]
  - Neuropathy peripheral [Not Recovered/Not Resolved]
  - Abdominal pain lower [Not Recovered/Not Resolved]
  - Renal pain [Not Recovered/Not Resolved]
  - Maculopathy [Unknown]
  - Muscle twitching [Not Recovered/Not Resolved]
  - Dysaesthesia [Not Recovered/Not Resolved]
  - Tendon discomfort [Not Recovered/Not Resolved]
  - Retinal disorder [Recovered/Resolved with Sequelae]

NARRATIVE: CASE EVENT DATE: 20190419
